FAERS Safety Report 14312995 (Version 3)
Quarter: 2018Q2

REPORT INFORMATION
  Report Type: Spontaneous
  Country: CH (occurrence: CH)
  Receive Date: 20171221
  Receipt Date: 20180402
  Transmission Date: 20180711
  Serious: Yes (Other)
  Sender: FDA-Public Use
  Company Number: CH-LPDUSPRD-20171754

PATIENT
  Age: 28 Year
  Sex: Female
  Weight: 52.5 kg

DRUGS (1)
  1. FERINJECT [Suspect]
     Active Substance: FERRIC CARBOXYMALTOSE
     Dosage: UNKNOWN 2 OR 3 DOSES
     Route: 042

REACTIONS (9)
  - Pain in extremity [Unknown]
  - Pelvic fracture [Unknown]
  - Vitamin D deficiency [Unknown]
  - Back pain [Unknown]
  - Arthralgia [Unknown]
  - Fracture [Unknown]
  - Hypophosphataemia [Unknown]
  - Renal disorder [Unknown]
  - Femoral neck fracture [Unknown]

NARRATIVE: CASE EVENT DATE: 201606
